FAERS Safety Report 7328187-1 (Version None)
Quarter: 2011Q1

REPORT INFORMATION
  Report Type: 
  Country: None (occurrence: None)
  Receive Date: 20110303
  Receipt Date: 20110302
  Transmission Date: 20110831
  Serious: Yes (Life-Threatening, Hospitalization, Disabling)
  Sender: FDA-Public Use
  Company Number: PHHO2011GB01673

PATIENT
  Sex: Female
  Weight: 19 kg

DRUGS (13)
  1. GLEEVEC [Suspect]
     Indication: ACUTE LYMPHOCYTIC LEUKAEMIA
     Dosage: 100 MG/200MG, ALTERNATE DAYS
     Route: 048
     Dates: start: 20101214, end: 20110103
  2. COLECALCIFEROL [Concomitant]
  3. FOLIC ACID [Concomitant]
  4. AMILORIDE HYDROCHLORIDE [Concomitant]
  5. OMEPRAZOLE [Concomitant]
  6. COTRIM [Concomitant]
  7. FLOXACILLIN SODIUM [Concomitant]
  8. SANDO K [Concomitant]
  9. MAGNESIUM GLYCEROPHOSPHATE [Concomitant]
  10. DEXAMETHASONE [Concomitant]
     Dosage: 400 MG, BID
     Route: 048
     Dates: start: 20101214, end: 20110101
  11. DOXORUBICIN [Concomitant]
     Dosage: 19 MG, UNK
     Route: 042
     Dates: start: 20101223, end: 20110105
  12. OXYCODONE [Concomitant]
  13. GABAPENTIN [Concomitant]

REACTIONS (8)
  - FEBRILE NEUTROPENIA [None]
  - MALAISE [None]
  - HYPERNATRAEMIA [None]
  - ACIDOSIS HYPERCHLORAEMIC [None]
  - PYREXIA [None]
  - ASPERGILLOSIS [None]
  - MEDICAL DEVICE REMOVAL [None]
  - SYSTEMIC CANDIDA [None]
